FAERS Safety Report 4962514-5 (Version None)
Quarter: 2006Q1

REPORT INFORMATION
  Report Type: 
  Country: None (occurrence: None)
  Receive Date: 20060127
  Receipt Date: 20050311
  Transmission Date: 20060701
  Serious: Yes (Hospitalization, Other)
  Sender: FDA-Public Use
  Company Number: 05-03-0389

PATIENT
  Age: 46 Year
  Sex: Female

DRUGS (2)
  1. CLOZAPINE [Suspect]
     Indication: SCHIZOPHRENIA
     Dosage: 425MG QD, ORAL
     Route: 048
     Dates: start: 20031001
  2. NEUPOGEN [Concomitant]

REACTIONS (2)
  - AGRANULOCYTOSIS [None]
  - PRE-EXISTING DISEASE [None]
